FAERS Safety Report 5073422-6 (Version None)
Quarter: 2006Q3

REPORT INFORMATION
  Report Type: 
  Country: None (occurrence: None)
  Receive Date: 20060717
  Receipt Date: 20050316
  Transmission Date: 20061208
  Serious: No
  Sender: FDA-Public Use
  Company Number: 2005000571

PATIENT
  Age: 81 Year
  Sex: Female

DRUGS (2)
  1. TARCEVA [Suspect]
     Indication: NON-SMALL CELL LUNG CANCER
     Dosage: 150 MG (QD), ORAL
     Route: 048
     Dates: start: 20050101
  2. OXYGEN(OXYGEN) [Concomitant]

REACTIONS (5)
  - CARDIAC DISORDER [None]
  - COUGH [None]
  - DERMATITIS ACNEIFORM [None]
  - OXYGEN SUPPLEMENTATION [None]
  - WEIGHT DECREASED [None]
